FAERS Safety Report 6789786-9 (Version None)
Quarter: 2010Q2

REPORT INFORMATION
  Report Type: 
  Country: None (occurrence: None)
  Receive Date: 20100624
  Receipt Date: 20100615
  Transmission Date: 20101027
  Serious: Yes (Life-Threatening, Hospitalization, Other)
  Sender: FDA-Public Use
  Company Number: US-PFIZER INC-2010075270

PATIENT
  Sex: Female
  Weight: 72.109 kg

DRUGS (3)
  1. LIPITOR [Suspect]
     Indication: BLOOD CHOLESTEROL INCREASED
     Dosage: 20 MG, 1X/DAY
     Route: 048
     Dates: start: 20000101
  2. FENOFIBRIC ACID [Concomitant]
     Indication: BLOOD TRIGLYCERIDES INCREASED
     Dosage: 135 MG, 1X/DAY
     Route: 048
  3. ADVIL LIQUI-GELS [Concomitant]
     Indication: HEADACHE
     Dosage: UNK
     Route: 048

REACTIONS (3)
  - FALL [None]
  - HYPERTENSION [None]
  - MENINGIOMA [None]
